FAERS Safety Report 23951382 (Version 1)
Quarter: 2024Q2

REPORT INFORMATION
  Report Type: Spontaneous
  Country: FR (occurrence: FR)
  Receive Date: 20240607
  Receipt Date: 20240607
  Transmission Date: 20240715
  Serious: Yes (Other)
  Sender: FDA-Public Use
  Company Number: None

PATIENT
  Age: 67 Year
  Sex: Female
  Weight: 126 kg

DRUGS (1)
  1. VANCOMYCIN [Suspect]
     Active Substance: VANCOMYCIN
     Indication: Product used for unknown indication
     Dosage: 4 GRAM
     Route: 042
     Dates: start: 20240402

REACTIONS (3)
  - Feeling hot [Recovered/Resolved]
  - Injection site irritation [Recovered/Resolved]
  - Vancomycin infusion reaction [Recovered/Resolved]

NARRATIVE: CASE EVENT DATE: 20240402
